FAERS Safety Report 9774243 (Version 3)
Quarter: 2014Q2

REPORT INFORMATION
  Report Type: Report from Study
  Country: AU (occurrence: AU)
  Receive Date: 20131220
  Receipt Date: 20140519
  Transmission Date: 20141212
  Serious: Yes (Other)
  Sender: FDA-Public Use
  Company Number: AU-ROCHE-1320434

PATIENT
  Age: 47 Year
  Sex: Female

DRUGS (1)
  1. ACTEMRA [Suspect]
     Indication: RHEUMATOID ARTHRITIS
     Route: 042
     Dates: start: 20110524

REACTIONS (5)
  - Fall [Unknown]
  - Ankle fracture [Recovered/Resolved]
  - Blister [Recovering/Resolving]
  - Weight increased [Unknown]
  - Arthralgia [Unknown]
